FAERS Safety Report 9458063 (Version 1)
Quarter: 2013Q3

REPORT INFORMATION
  Report Type: Spontaneous
  Country: GB (occurrence: None)
  Receive Date: 20130812
  Receipt Date: 20130812
  Transmission Date: 20140515
  Serious: Yes (Disabling, Other)
  Sender: FDA-Public Use
  Company Number: AUR-APL-2013-06511

PATIENT
  Age: 30 Year
  Sex: Male
  Weight: 63.5 kg

DRUGS (2)
  1. CIPROFLOXACIN [Suspect]
     Indication: URINARY TRACT INFECTION
     Dosage: 1000 MG (500 MG, 2 IN 1 D),ORAL
     Route: 048
     Dates: start: 20130626, end: 20130703
  2. PREGABALIN (PREGABALIN) [Concomitant]

REACTIONS (7)
  - Anxiety [None]
  - Renal pain [None]
  - Agitation [None]
  - Arthralgia [None]
  - Decreased appetite [None]
  - Fatigue [None]
  - Jaundice [None]
